FAERS Safety Report 11523781 (Version 1)
Quarter: 2015Q3

REPORT INFORMATION
  Report Type: Spontaneous
  Country: US (occurrence: US)
  Receive Date: 20150918
  Receipt Date: 20150918
  Transmission Date: 20151125
  Serious: No
  Sender: FDA-Public Use
  Company Number: US-ROCHE-738754

PATIENT
  Sex: Male
  Weight: 81.6 kg

DRUGS (1)
  1. PEGASYS [Suspect]
     Active Substance: PEGINTERFERON ALFA-2A
     Indication: PRODUCT USED FOR UNKNOWN INDICATION
     Dosage: FORM: PREFILLED SYRINGE
     Route: 058

REACTIONS (3)
  - Product quality issue [Unknown]
  - Medication error [Unknown]
  - No adverse event [Unknown]
